FAERS Safety Report 7673410-7 (Version None)
Quarter: 2011Q3

REPORT INFORMATION
  Report Type: 
  Country: None (occurrence: None)
  Receive Date: 20110810
  Receipt Date: 20110804
  Transmission Date: 20111222
  Serious: No
  Sender: FDA-Public Use
  Company Number: US-PFIZER INC-2011178767

PATIENT
  Age: 59 Year
  Sex: Male
  Weight: 122 kg

DRUGS (2)
  1. ANDROGEL [Concomitant]
     Indication: GROWTH HORMONE DEFICIENCY
     Dosage: 30 MG, 1X/DAY
  2. GENOTROPIN [Suspect]
     Indication: GROWTH HORMONE DEFICIENCY
     Dosage: 0.6 MG, 1X/DAY
     Dates: start: 20100809

REACTIONS (2)
  - INCORRECT DOSE ADMINISTERED [None]
  - FEELING ABNORMAL [None]
